FAERS Safety Report 6803294-8 (Version None)
Quarter: 2010Q2

REPORT INFORMATION
  Report Type: 
  Country: None (occurrence: None)
  Receive Date: 20100628
  Receipt Date: 20100617
  Transmission Date: 20101027
  Serious: Yes (Other)
  Sender: FDA-Public Use
  Company Number: FR-PFIZER INC-2010037000

PATIENT
  Age: 50 Year
  Sex: Male
  Weight: 104 kg

DRUGS (3)
  1. SUTENT [Suspect]
     Indication: TRANSITIONAL CELL CARCINOMA
     Dosage: 37.5 MG, 1X/DAY
     Dates: start: 20090929, end: 20100317
  2. NEBILOX [Concomitant]
     Dosage: 1 DF, 1X/DAY
  3. COTAREG [Concomitant]
     Dosage: 160 MG, 1X/DAY

REACTIONS (1)
  - INTRACRANIAL PRESSURE INCREASED [None]
